FAERS Safety Report 9410891 (Version 1)
Quarter: 2013Q3

REPORT INFORMATION
  Report Type: Spontaneous
  Country: US (occurrence: US)
  Receive Date: 20130719
  Receipt Date: 20130719
  Transmission Date: 20140515
  Serious: Yes (Hospitalization)
  Sender: FDA-Public Use
  Company Number: US-ASTRAZENECA-2013SE52933

PATIENT
  Age: 57 Year
  Sex: Male

DRUGS (12)
  1. LISINOPRIL (NON-AZ PRODUCT) [Suspect]
     Route: 048
  2. NOVOLOG [Suspect]
     Indication: TYPE 2 DIABETES MELLITUS
     Dosage: NOVOLOG 70.30 INSULIN 50 UNITS SQ BID,IF BS LESS THAN 30UNITS SQ
  3. PLACEBO [Suspect]
     Indication: TYPE 2 DIABETES MELLITUS
     Route: 048
  4. VITAMIN D [Concomitant]
     Indication: VITAMIN SUPPLEMENTATION
     Dosage: 1DF=500000 UNITS, 1 DF
     Route: 048
  5. GABAPENTIN [Concomitant]
     Indication: PHANTOM PAIN
     Route: 048
  6. COLACE [Concomitant]
     Indication: DIARRHOEA
     Route: 048
  7. GLUCOSAMINE [Concomitant]
     Indication: ARTHRALGIA
     Route: 048
  8. CHONDROITIN [Concomitant]
     Indication: ARTHRALGIA
     Route: 048
  9. CALCIUM [Concomitant]
     Route: 048
  10. MELATONIN [Concomitant]
     Indication: INSOMNIA
     Route: 048
  11. NOVOLIN [Concomitant]
     Dosage: REGULAR SLIDING SCALE BEFORE MEALS + BEDTIME, 1 DF
     Route: 058
     Dates: start: 20110204, end: 20110208
  12. INSULIN [Concomitant]
     Route: 058

REACTIONS (2)
  - Cholelithiasis [Recovered/Resolved]
  - Pancreatitis [Recovered/Resolved]
